FAERS Safety Report 16283830 (Version 2)
Quarter: 2019Q2

REPORT INFORMATION
  Report Type: Spontaneous
  Country: AU (occurrence: AU)
  Receive Date: 20190507
  Receipt Date: 20190619
  Transmission Date: 20190711
  Serious: Yes (Other)
  Sender: FDA-Public Use
  Company Number: AU-PFIZER INC-2019190625

PATIENT
  Age: 23 Year
  Sex: Female

DRUGS (9)
  1. FUROSEMIDE. [Concomitant]
     Active Substance: FUROSEMIDE
     Indication: CEREBROVASCULAR ACCIDENT
     Dosage: UNK
     Route: 048
  2. HEPARIN SODIUM. [Suspect]
     Active Substance: HEPARIN SODIUM
     Indication: INTRACARDIAC THROMBUS
     Dosage: UNK (INTRAVENOUS UNFRACTIONATED HEPARIN)
     Route: 042
  3. METOPROLOL. [Concomitant]
     Active Substance: METOPROLOL
     Dosage: 100 MG, 2X/DAY
     Route: 048
  4. LASIX [Concomitant]
     Active Substance: FUROSEMIDE
     Dosage: UNK (40MG ORALLY WITH IV BOLUSES AS REQUIRED)
     Route: 040
  5. METOPROLOL. [Concomitant]
     Active Substance: METOPROLOL
     Indication: CEREBROVASCULAR ACCIDENT
     Dosage: UNK
  6. HEPARIN SODIUM. [Suspect]
     Active Substance: HEPARIN SODIUM
     Indication: CEREBROVASCULAR ACCIDENT
  7. ENOXAPARIN [Suspect]
     Active Substance: ENOXAPARIN
     Indication: INTRACARDIAC THROMBUS
     Dosage: UNK
     Route: 058
  8. LASIX [Concomitant]
     Active Substance: FUROSEMIDE
     Indication: CEREBROVASCULAR ACCIDENT
     Dosage: 40 MG, UNK (ORALLY WITH IV BOLUSES AS REQUIRED)
     Route: 048
  9. SODIUM CHLORIDE. [Concomitant]
     Active Substance: SODIUM CHLORIDE
     Dosage: UNK

REACTIONS (1)
  - Antithrombin III deficiency [Unknown]
